FAERS Safety Report 8175946-1 (Version None)
Quarter: 2012Q1

REPORT INFORMATION
  Report Type: 
  Country: None (occurrence: None)
  Receive Date: 20120301
  Receipt Date: 20120224
  Transmission Date: 20120608
  Serious: No
  Sender: FDA-Public Use
  Company Number: US-PFIZER INC-2012051307

PATIENT
  Sex: Male

DRUGS (1)
  1. SUTENT [Suspect]
     Indication: RENAL CANCER
     Dosage: 12.5 MG, X 3 DAILY
     Route: 048
     Dates: start: 20110706

REACTIONS (2)
  - DISEASE PROGRESSION [None]
  - MALIGNANT URINARY TRACT NEOPLASM [None]
